FAERS Safety Report 6456456-6 (Version None)
Quarter: 2009Q4

REPORT INFORMATION
  Report Type: 
  Country: None (occurrence: None)
  Receive Date: 20091125
  Receipt Date: 20091117
  Transmission Date: 20100525
  Serious: Yes (Hospitalization)
  Sender: FDA-Public Use
  Company Number: DE-AMGEN-US375165

PATIENT
  Age: 71 Year
  Sex: Female

DRUGS (6)
  1. ENBREL [Suspect]
     Indication: RHEUMATOID ARTHRITIS
     Dosage: PRE-FILLED SYRINGE, 50 MG ONE TIME IN THREE WEEKS
     Route: 058
     Dates: start: 20000101
  2. TEBONIN [Concomitant]
     Route: 065
  3. METOPROLOL SUCCINATE [Concomitant]
     Route: 065
  4. TORSEMIDE [Concomitant]
     Route: 065
  5. ACETYLSALICYLIC ACID [Concomitant]
     Route: 065
  6. PENTAERYTHRITOL TETRANITRATE [Concomitant]
     Route: 065

REACTIONS (1)
  - TOE OPERATION [None]
